FAERS Safety Report 17533453 (Version 1)
Quarter: 2020Q1

REPORT INFORMATION
  Report Type: Spontaneous
  Country: DE (occurrence: DE)
  Receive Date: 20200312
  Receipt Date: 20200312
  Transmission Date: 20200409
  Serious: Yes (Other)
  Sender: FDA-Public Use
  Company Number: DE-PFIZER INC-2020103944

PATIENT
  Age: 27 Year
  Sex: Female
  Weight: 57 kg

DRUGS (1)
  1. CYTOTEC [Suspect]
     Active Substance: MISOPROSTOL
     Indication: LABOUR INDUCTION
     Dosage: 25 MG, UNK
     Route: 048
     Dates: start: 20160825, end: 20160826

REACTIONS (8)
  - Product use in unapproved indication [Unknown]
  - Failed trial of labour [Recovered/Resolved]
  - Uterine tachysystole [Recovered/Resolved]
  - Pain [Recovered/Resolved]
  - Seizure [Recovered/Resolved]
  - Postpartum stress disorder [Recovered/Resolved]
  - Injury [Recovered/Resolved]
  - Off label use [Unknown]

NARRATIVE: CASE EVENT DATE: 20160825
